FAERS Safety Report 8306102-1 (Version None)
Quarter: 2012Q2

REPORT INFORMATION
  Report Type: 
  Country: None (occurrence: None)
  Receive Date: 20120423
  Receipt Date: 20120419
  Transmission Date: 20120825
  Serious: Yes (Death, Other)
  Sender: FDA-Public Use
  Company Number: BE-PFIZER INC-2012085990

PATIENT
  Age: 64 Year
  Sex: Male
  Weight: 73.5 kg

DRUGS (8)
  1. ROCALTROL [Concomitant]
     Dosage: 0.5 UG, 1X/DAY
     Route: 048
     Dates: start: 20110301
  2. DOMINAL ^ASTA^ [Concomitant]
     Dosage: 120 MG, 1X/DAY
     Route: 048
     Dates: start: 20110301
  3. LASIX [Concomitant]
     Dosage: UNK, ALTERNATE DAY
     Route: 048
     Dates: start: 20120323
  4. MAGNESIUM [Concomitant]
     Dosage: UNK, 9 TIMES PER DAY
     Route: 048
     Dates: start: 20120329
  5. PARACODINE [Concomitant]
     Dosage: 10 MG, 1X/DAY
     Route: 048
     Dates: start: 20120301
  6. SUTENT [Suspect]
     Indication: THYROID NEOPLASM
     Dosage: 50 MG, 1X/DAY
     Route: 048
     Dates: start: 20090430, end: 20120401
  7. ELTHYRONE [Concomitant]
     Dosage: 200 UG, 1X/DAY
     Route: 048
  8. TRAZODONE HCL [Concomitant]
     Dosage: 50 MG, 1X/DAY
     Route: 048
     Dates: start: 20111101

REACTIONS (2)
  - THROMBOCYTOPENIA [None]
  - CARDIAC ARREST [None]
